FAERS Safety Report 9344971 (Version 1)
Quarter: 2013Q2

REPORT INFORMATION
  Report Type: Spontaneous
  Country: US (occurrence: US)
  Receive Date: 20130612
  Receipt Date: 20130612
  Transmission Date: 20140414
  Serious: Yes (Other)
  Sender: FDA-Public Use
  Company Number: US-NAPPMUNDI-USA-2013-0102454

PATIENT
  Sex: Male

DRUGS (3)
  1. OXYCONTIN (NDA 22-272) [Suspect]
     Indication: PAIN
     Dosage: 80 MG, BID OR TID
     Route: 048
     Dates: start: 1993
  2. XANAX [Concomitant]
     Indication: ANXIETY
     Dosage: 2 MG, DAILY
     Route: 048
  3. ROXICODONE [Concomitant]
     Indication: BREAKTHROUGH PAIN
     Dosage: 30 MG, TID PRN
     Route: 048

REACTIONS (9)
  - Drug dependence [Recovered/Resolved]
  - Paralysis [Unknown]
  - Convulsion [Recovered/Resolved]
  - Tongue biting [Not Recovered/Not Resolved]
  - Hypoaesthesia [Recovered/Resolved]
  - Pyrexia [Recovered/Resolved]
  - Unevaluable event [Recovered/Resolved]
  - Abasia [Unknown]
  - Hyperhidrosis [Unknown]
